FAERS Safety Report 4660117-3 (Version None)
Quarter: 2005Q2

REPORT INFORMATION
  Report Type: 
  Country: None (occurrence: None)
  Receive Date: 20050421
  Receipt Date: 20050216
  Transmission Date: 20051028
  Serious: Yes (Other)
  Sender: FDA-Public Use
  Company Number: 2004116388

PATIENT
  Age: 47 Year
  Sex: Female
  Weight: 148.3262 kg

DRUGS (7)
  1. RELPAX [Suspect]
     Indication: CLUSTER HEADACHE
     Dosage: 40 MG, 1 IN 1 AS NECESSARY, ORAL
     Route: 048
     Dates: start: 20041115, end: 20041216
  2. BUPROPION HYDROCHLORIDE [Concomitant]
  3. LEVOTHYROXINE SODIUM [Concomitant]
  4. LAMOTRIGINE [Concomitant]
  5. LANSOPRAZOLE [Concomitant]
  6. TENORMIN [Concomitant]
  7. TOPAMAX [Concomitant]

REACTIONS (2)
  - DRUG INEFFECTIVE [None]
  - HEADACHE [None]
